FAERS Safety Report 24691584 (Version 1)
Quarter: 2024Q4

REPORT INFORMATION
  Report Type: Spontaneous
  Country: US (occurrence: None)
  Receive Date: 20241203
  Receipt Date: 20241203
  Transmission Date: 20250115
  Serious: Yes (Life-Threatening, Hospitalization)
  Sender: Public
  Company Number: None

PATIENT
  Age: 72 Year
  Sex: Male
  Weight: 123.8 kg

DRUGS (7)
  1. TRODELVY [Suspect]
     Active Substance: SACITUZUMAB GOVITECAN-HZIY
     Indication: Metastases to bladder
     Dosage: 1100 MG DY 1 AND DAY 8 INTRVENOUS ?
     Route: 042
     Dates: start: 20241106, end: 20241114
  2. Emend 150mg [Concomitant]
     Dates: start: 20241106, end: 20241114
  3. aloxi 0.25 mg [Concomitant]
     Dates: start: 20241106, end: 20241114
  4. pepcid 20 mg [Concomitant]
     Dates: start: 20241106, end: 20241114
  5. diphenhydramine 50 mg [Concomitant]
     Dates: start: 20241106, end: 20241114
  6. dexamethasone 10 mg [Concomitant]
     Dates: start: 20241106, end: 20241114
  7. atropine 0.25 mg [Concomitant]
     Dates: start: 20241113, end: 20241114

REACTIONS (5)
  - Diarrhoea [None]
  - Acute kidney injury [None]
  - Electrolyte imbalance [None]
  - Neutropenic sepsis [None]
  - Bacteraemia [None]

NARRATIVE: CASE EVENT DATE: 20241113
